FAERS Safety Report 9641310 (Version 2)
Quarter: 2013Q4

REPORT INFORMATION
  Report Type: Spontaneous
  Country: FR (occurrence: FR)
  Receive Date: 20131023
  Receipt Date: 20131029
  Transmission Date: 20140711
  Serious: Yes (Life-Threatening, Other)
  Sender: FDA-Public Use
  Company Number: FR-009507513-1310FRA006444

PATIENT
  Age: 57 Year
  Sex: Male

DRUGS (3)
  1. COZAAR 100MG, COMPRIM? PELLICUL? [Suspect]
     Indication: HYPERTENSION
     Dosage: UNK
     Route: 048
     Dates: start: 20130724, end: 20130807
  2. HYZAAR 50 MG/12,5 MG, COMPRIM? PELLICUL? [Suspect]
     Indication: HYPERTENSION
     Dosage: UNK
     Route: 048
     Dates: start: 20130724, end: 20130807
  3. VISIPAQUE [Suspect]
     Dosage: 1 DF, ONCE
     Route: 042
     Dates: start: 20130805, end: 20130805

REACTIONS (3)
  - Metabolic acidosis [Recovering/Resolving]
  - Acute pulmonary oedema [Recovering/Resolving]
  - Renal failure acute [Recovering/Resolving]
